FAERS Safety Report 16403686 (Version 3)
Quarter: 2022Q1

REPORT INFORMATION
  Report Type: Report from Study
  Country: IT (occurrence: IT)
  Receive Date: 20190607
  Receipt Date: 20220307
  Transmission Date: 20220423
  Serious: Yes (Hospitalization, Other)
  Sender: FDA-Public Use
  Company Number: IT-BRISTOL-MYERS SQUIBB COMPANY-BMS-2019-055688

PATIENT
  Age: 64 Year
  Sex: Female

DRUGS (17)
  1. ENTECAVIR [Suspect]
     Active Substance: ENTECAVIR
     Indication: Hepatitis B virus test positive
     Dosage: 0.5 MILLIGRAM
     Route: 065
     Dates: start: 201303
  2. AVADOMIDE [Suspect]
     Active Substance: AVADOMIDE
     Indication: Follicular lymphoma
     Dosage: CYCLE 1 MONDAY-FRIDAY
     Route: 048
     Dates: start: 20171005, end: 20171102
  3. AVADOMIDE [Suspect]
     Active Substance: AVADOMIDE
     Dosage: CYCLE 1 MONDAY-FRIDAY
     Route: 048
     Dates: start: 20190221, end: 20190320
  4. RITUXIMAB [Suspect]
     Active Substance: RITUXIMAB
     Indication: Follicular lymphoma
     Dosage: 375 MILLIGRAM, CYCLE 1
     Route: 042
     Dates: start: 20171012, end: 20171012
  5. OMEPRAZOLE [Suspect]
     Active Substance: OMEPRAZOLE
     Indication: Gastritis prophylaxis
     Dosage: 20 MILLIGRAM, QD
     Route: 065
     Dates: start: 201501
  6. OMEPRAZOLE [Suspect]
     Active Substance: OMEPRAZOLE
     Indication: Gastrooesophageal reflux disease
     Dosage: 20 MILLIGRAM, QD
     Route: 048
  7. NADROPARIN CALCIUM [Concomitant]
     Active Substance: NADROPARIN CALCIUM
     Indication: Thrombosis prophylaxis
     Dosage: 1 (UNITS NOT SPECIFIED)
     Route: 065
     Dates: start: 20171005
  8. NADROPARIN CALCIUM [Concomitant]
     Active Substance: NADROPARIN CALCIUM
     Dosage: 5700 INTERNATIONAL UNIT
     Route: 058
  9. FILGRASTIM [Concomitant]
     Active Substance: FILGRASTIM
     Indication: Prophylaxis
     Dosage: 2 UNITS NOTSPECIFIED
     Dates: start: 201804
  10. TAVOR (LORAZEPAM) [Concomitant]
     Active Substance: LORAZEPAM
     Indication: Insomnia
     Dosage: 9 MILLIGRAM
     Route: 065
  11. TAVOR (LORAZEPAM) [Concomitant]
     Active Substance: LORAZEPAM
     Dosage: 1 MILLIGRAM
     Route: 048
     Dates: start: 20190124
  12. CHOLECALCIFEROL [Concomitant]
     Active Substance: CHOLECALCIFEROL
     Indication: Osteopenia
     Dosage: 35 DROP
     Route: 048
     Dates: start: 2015
  13. ACYCLOVIR [Concomitant]
     Active Substance: ACYCLOVIR
     Indication: Cytomegalovirus chorioretinitis
     Dosage: 750 MILLIGRAM
     Route: 048
  14. BACTRIM [Concomitant]
     Active Substance: SULFAMETHOXAZOLE\TRIMETHOPRIM
     Indication: Antifungal prophylaxis
     Dosage: 960 MILLIGRAM
     Route: 048
     Dates: start: 20171005
  15. MOVICOL [Concomitant]
     Active Substance: POLYETHYLENE GLYCOL 3350\POTASSIUM CHLORIDE\SODIUM BICARBONATE\SODIUM CHLORIDE
     Indication: Constipation
     Dosage: 1 OTHER, PRN
     Route: 048
     Dates: start: 20180906
  16. ANTACIDS NOS [Concomitant]
     Active Substance: ANTACIDS NOS
     Indication: Gastrooesophageal reflux disease
     Dosage: UNK
     Route: 048
  17. OMEPRAZOLE [Concomitant]
     Active Substance: OMEPRAZOLE
     Indication: Gastrooesophageal reflux disease
     Dosage: 20 MILLIGRAM
     Route: 048

REACTIONS (2)
  - Herpes ophthalmic [Not Recovered/Not Resolved]
  - Viral uveitis [Recovered/Resolved]

NARRATIVE: CASE EVENT DATE: 20190318
